FAERS Safety Report 9975826 (Version 2)
Quarter: 2014Q1

REPORT INFORMATION
  Report Type: Spontaneous
  Country: IL (occurrence: IL)
  Receive Date: 20140306
  Receipt Date: 20140306
  Transmission Date: 20141002
  Serious: Yes (Other)
  Sender: FDA-Public Use
  Company Number: IL-009507513-1312ISR011441

PATIENT
  Age: 69 Year
  Sex: Male
  Weight: 93.5 kg

DRUGS (5)
  1. JANUET [Suspect]
     Indication: TYPE 2 DIABETES MELLITUS
     Dosage: DAILY DOSE 2 TABS
     Route: 048
     Dates: start: 20120323
  2. VASODIP [Concomitant]
     Dosage: 10 MG, BID
     Route: 048
  3. ENALADEX [Concomitant]
     Dosage: 20 MG, BID
     Route: 048
  4. CRESTOR [Concomitant]
     Dosage: 10 MG, QD
     Route: 048
  5. VITAMIN D (UNSPECIFIED) [Concomitant]
     Dosage: UNK
     Dates: start: 2011

REACTIONS (3)
  - Arthritis [Not Recovered/Not Resolved]
  - Antibody test negative [Not Recovered/Not Resolved]
  - Osteoarthritis [Not Recovered/Not Resolved]
